FAERS Safety Report 18615043 (Version 3)
Quarter: 2021Q1

REPORT INFORMATION
  Report Type: Spontaneous
  Country: JP (occurrence: JP)
  Receive Date: 20201215
  Receipt Date: 20210224
  Transmission Date: 20210419
  Serious: No
  Sender: FDA-Public Use
  Company Number: JP-ROCHE-2731662

PATIENT
  Age: 70 Year
  Sex: Male
  Weight: 54 kg

DRUGS (14)
  1. NIFEDIPINE. [Concomitant]
     Active Substance: NIFEDIPINE
     Indication: HYPERTENSION
     Route: 048
     Dates: start: 20200124
  2. ALLOPURINOL. [Concomitant]
     Active Substance: ALLOPURINOL
     Indication: HYPERURICAEMIA
     Route: 048
     Dates: start: 20200805, end: 20201016
  3. CILNIDIPINE [Concomitant]
     Active Substance: CILNIDIPINE
     Indication: HYPERTENSION
     Route: 048
     Dates: start: 20200116
  4. ALFACALCIDOL [Concomitant]
     Active Substance: ALFACALCIDOL
     Route: 048
     Dates: start: 20200311
  5. HYDROCORTISONE SODIUM SUCCINATE [Concomitant]
     Active Substance: HYDROCORTISONE SODIUM SUCCINATE
     Dates: start: 20201008, end: 20201008
  6. LANSOPRAZOLE. [Concomitant]
     Active Substance: LANSOPRAZOLE
     Indication: GASTROOESOPHAGEAL REFLUX DISEASE
     Route: 048
     Dates: start: 20191224
  7. MAGMITT [Concomitant]
     Active Substance: MAGNESIUM OXIDE
     Indication: CONSTIPATION
     Route: 048
  8. ROSUVASTATIN. [Concomitant]
     Active Substance: ROSUVASTATIN
     Indication: HYPERCHOLESTEROLAEMIA
     Route: 048
  9. OLMESARTAN [Concomitant]
     Active Substance: OLMESARTAN
     Route: 048
     Dates: start: 20200909
  10. RITUXAN [Suspect]
     Active Substance: RITUXIMAB
     Indication: MICROSCOPIC POLYANGIITIS
     Dosage: AT 15:00 ON 08 OCT 2020, INFUSED AT 81 ML. AT 16:11 ON 08 OCT 2020, WAS RESUMED AT 3 ML/H. AT 16:35
     Route: 041
     Dates: start: 20201008, end: 20201008
  11. GLUCOSE [Concomitant]
     Active Substance: DEXTROSE
     Route: 042
     Dates: start: 20201008, end: 20201008
  12. POLARAMINE [Concomitant]
     Active Substance: DEXCHLORPHENIRAMINE MALEATE
     Route: 042
     Dates: start: 20201008, end: 20201008
  13. CHLORPHENIRAMINE MALEATE. [Concomitant]
     Active Substance: CHLORPHENIRAMINE MALEATE
     Dates: start: 20201008, end: 20201008
  14. SALINE [Concomitant]
     Active Substance: SODIUM CHLORIDE

REACTIONS (2)
  - Wheezing [Recovered/Resolved]
  - Dyspnoea [Recovered/Resolved]

NARRATIVE: CASE EVENT DATE: 20201008
